FAERS Safety Report 7366351-6 (Version None)
Quarter: 2011Q1

REPORT INFORMATION
  Report Type: 
  Country: None (occurrence: None)
  Receive Date: 20110322
  Receipt Date: 20110308
  Transmission Date: 20110831
  Serious: Yes (Hospitalization)
  Sender: FDA-Public Use
  Company Number: US-JNJFOC-20080306358

PATIENT
  Sex: Male
  Weight: 67 kg

DRUGS (9)
  1. PREVACID [Concomitant]
  2. REMICADE [Suspect]
     Indication: DRUG DEPENDENCE
     Route: 042
  3. REMICADE [Suspect]
     Route: 042
  4. ORAL SUPPLEMENTS [Concomitant]
  5. REMICADE [Suspect]
     Indication: CROHN'S DISEASE
     Route: 042
  6. REMICADE [Suspect]
     Route: 042
  7. MESALAMINE [Concomitant]
     Route: 048
  8. METHOTREXATE [Concomitant]
  9. URSODIOL [Concomitant]

REACTIONS (1)
  - GASTRITIS [None]
